FAERS Safety Report 9590176 (Version 1)
Quarter: 2013Q4

REPORT INFORMATION
  Report Type: Spontaneous
  Country: US (occurrence: US)
  Receive Date: 20131003
  Receipt Date: 20131003
  Transmission Date: 20140711
  Serious: No
  Sender: FDA-Public Use
  Company Number: US-AMGEN-USASP2012075139

PATIENT
  Age: 55 Year
  Sex: Female

DRUGS (15)
  1. ENBREL [Suspect]
     Indication: RHEUMATOID ARTHRITIS
     Dosage: UNK
  2. GLIPIZIDE [Concomitant]
     Dosage: UNK
  3. LEVOTHYROXIN [Concomitant]
     Dosage: UNK
  4. VICODIN [Concomitant]
     Dosage: UNK
  5. PROAIR                             /00139502/ [Concomitant]
     Dosage: UNK
  6. MULTIVITAMIN                       /00097801/ [Concomitant]
     Dosage: UNK
  7. HYDROCHLOROTHIAZIDE [Concomitant]
     Dosage: UNK
  8. PLAQUENIL                          /00072602/ [Concomitant]
     Dosage: UNK
  9. MELOXICAM [Concomitant]
     Dosage: UNK
  10. METHOTREXATE [Concomitant]
     Dosage: UNK
  11. FOLIC ACID [Concomitant]
     Dosage: UNK
  12. LANSOPRAZOLE [Concomitant]
     Dosage: UNK
  13. BUTRANS                            /00444001/ [Concomitant]
     Dosage: UNK
  14. ALLEGRA [Concomitant]
     Dosage: UNK
  15. JANUMET [Concomitant]
     Dosage: UNK

REACTIONS (1)
  - Hypersensitivity [Unknown]
